FAERS Safety Report 4688575-9 (Version None)
Quarter: 2005Q2

REPORT INFORMATION
  Report Type: 
  Country: None (occurrence: None)
  Receive Date: 20050613
  Receipt Date: 20050602
  Transmission Date: 20051028
  Serious: Yes (Other)
  Sender: FDA-Public Use
  Company Number: 200515086GDDC

PATIENT
  Age: 87 Year
  Sex: Female

DRUGS (6)
  1. FLAGYL [Suspect]
     Route: 042
     Dates: start: 19960410, end: 19960417
  2. AMIODARONE [Suspect]
     Indication: ARRHYTHMIA
     Route: 048
     Dates: start: 19960417, end: 19960419
  3. AMPICILLIN [Suspect]
     Route: 042
     Dates: start: 19960410, end: 19960417
  4. CAPTOPRIL [Concomitant]
     Indication: ESSENTIAL HYPERTENSION
     Route: 048
  5. WARFARIN SODIUM [Concomitant]
     Dosage: DOSE: 25.0 THOUSAND INTERANAL DAILY
  6. GENTAMICIN SULFATE [Concomitant]
     Dates: start: 19960411

REACTIONS (4)
  - ALANINE AMINOTRANSFERASE INCREASED [None]
  - ASPARTATE AMINOTRANSFERASE INCREASED [None]
  - GAMMA-GLUTAMYLTRANSFERASE INCREASED [None]
  - HEPATIC FUNCTION ABNORMAL [None]
